FAERS Safety Report 16840583 (Version 1)
Quarter: 2019Q3

REPORT INFORMATION
  Report Type: Spontaneous
  Country: US (occurrence: US)
  Receive Date: 20190923
  Receipt Date: 20190923
  Transmission Date: 20191005
  Serious: No
  Sender: FDA-Public Use
  Company Number: US-BIOGEN-2018BI00654633

PATIENT
  Age: 64 Year
  Sex: Female

DRUGS (4)
  1. TECFIDERA [Suspect]
     Active Substance: DIMETHYL FUMARATE
     Route: 050
     Dates: start: 20181105
  2. TECFIDERA [Suspect]
     Active Substance: DIMETHYL FUMARATE
     Indication: MULTIPLE SCLEROSIS
     Route: 050
     Dates: start: 20181029, end: 20181104
  3. TECFIDERA [Suspect]
     Active Substance: DIMETHYL FUMARATE
     Dosage: STARTING DOSE
     Route: 048
     Dates: start: 20181026, end: 20181101
  4. TECFIDERA [Suspect]
     Active Substance: DIMETHYL FUMARATE
     Dosage: MAINTENANCE DOSE
     Route: 048
     Dates: start: 20181102

REACTIONS (14)
  - Hypoaesthesia [Unknown]
  - Depressed mood [Unknown]
  - Nasal congestion [Not Recovered/Not Resolved]
  - Alopecia [Unknown]
  - Back pain [Not Recovered/Not Resolved]
  - Constipation [Not Recovered/Not Resolved]
  - Flank pain [Not Recovered/Not Resolved]
  - Intervertebral disc degeneration [Recovered/Resolved]
  - Abdominal pain upper [Recovered/Resolved]
  - Diarrhoea [Recovered/Resolved]
  - Flushing [Recovered/Resolved]
  - Product dose omission [Recovered/Resolved]
  - Malaise [Not Recovered/Not Resolved]
  - Stress [Not Recovered/Not Resolved]

NARRATIVE: CASE EVENT DATE: 201811
